FAERS Safety Report 9818521 (Version 1)
Quarter: 2014Q1

REPORT INFORMATION
  Report Type: Report from Study
  Country: FR (occurrence: FR)
  Receive Date: 20140115
  Receipt Date: 20140115
  Transmission Date: 20141002
  Serious: Yes (Hospitalization)
  Sender: FDA-Public Use
  Company Number: FR-ROCHE-1332595

PATIENT
  Age: 79 Year
  Sex: Female
  Weight: 52 kg

DRUGS (6)
  1. VISMODEGIB [Suspect]
     Indication: CHRONIC LYMPHOCYTIC LEUKAEMIA
     Dosage: LAST DOSE PRIOR TO SAE 1/SEP/2013
     Route: 048
     Dates: start: 20130717
  2. ALPRAZOLAM [Concomitant]
     Indication: ANXIETY
  3. MIANSERINE [Concomitant]
     Indication: DEPRESSION
     Route: 065
     Dates: start: 20130218
  4. FUROSEMIDE [Concomitant]
     Indication: HYPERTENSION
     Route: 065
     Dates: start: 20130430
  5. FUROSEMIDE [Concomitant]
     Route: 065
     Dates: start: 20130904, end: 20130912
  6. ESOMEPRAZOLE [Concomitant]
     Indication: HYPERTENSION
     Route: 065
     Dates: start: 20130416

REACTIONS (2)
  - Lung infection [Recovered/Resolved]
  - Cardiac failure [Recovered/Resolved with Sequelae]
